FAERS Safety Report 6533968-8 (Version None)
Quarter: 2010Q1

REPORT INFORMATION
  Report Type: 
  Country: None (occurrence: None)
  Receive Date: 20100112
  Receipt Date: 20100104
  Transmission Date: 20100710
  Serious: Yes (Other)
  Sender: FDA-Public Use
  Company Number: US-CELGENEUS-163-C5013-06020048

PATIENT
  Sex: Female

DRUGS (5)
  1. CC-5013 [Suspect]
     Indication: COMPLEX REGIONAL PAIN SYNDROME
     Route: 048
     Dates: start: 20050811, end: 20060201
  2. CARBAMAZEPINE [Concomitant]
     Dosage: UNKNOWN
  3. LEVOTHYROXINE SODIUM [Concomitant]
     Indication: HYPOTHYROIDISM
     Dosage: UNKNOWN
  4. OXYCODONE [Concomitant]
     Indication: PAIN
     Dosage: UNKNOWN
  5. ACETAMINOPHEN [Concomitant]
     Indication: PAIN
     Dosage: UNKNOWN

REACTIONS (1)
  - PREGNANCY [None]
